FAERS Safety Report 7545990-3 (Version None)
Quarter: 2011Q2

REPORT INFORMATION
  Report Type: 
  Country: None (occurrence: None)
  Receive Date: 20110614
  Receipt Date: 20110531
  Transmission Date: 20111010
  Serious: Yes (Other)
  Sender: FDA-Public Use
  Company Number: PHHY2011MY48451

PATIENT
  Age: 48 Year
  Sex: Male

DRUGS (1)
  1. CLOZAPINE [Suspect]
     Indication: SCHIZOPHRENIA
     Dosage: 75 MG
     Route: 048

REACTIONS (3)
  - THROMBOCYTOSIS [None]
  - ELECTROLYTE IMBALANCE [None]
  - RED BLOOD CELL ABNORMALITY [None]
